FAERS Safety Report 17540168 (Version 1)
Quarter: 2020Q1

REPORT INFORMATION
  Report Type: Spontaneous
  Country: US (occurrence: US)
  Receive Date: 20200313
  Receipt Date: 20200313
  Transmission Date: 20200409
  Serious: No
  Sender: FDA-Public Use
  Company Number: US-009507513-2002USA010616

PATIENT
  Age: 74 Year
  Sex: Male

DRUGS (3)
  1. ASMANEX [Suspect]
     Active Substance: MOMETASONE FUROATE
     Indication: ASTHMA
     Dosage: 1 INHALATION ONCE A DAY AT BEDTIME
     Route: 055
     Dates: start: 20191122
  2. ASMANEX [Suspect]
     Active Substance: MOMETASONE FUROATE
     Indication: COUGH
     Dosage: 1 INHALATION ONCE A DAY AT BEDTIME
     Route: 055
     Dates: start: 20200224
  3. ASMANEX [Suspect]
     Active Substance: MOMETASONE FUROATE
     Indication: WHEEZING
     Dosage: 1 INHALATION ONCE A DAY AT BEDTIME
     Route: 055
     Dates: start: 202001

REACTIONS (9)
  - Cough [Recovering/Resolving]
  - Product quality issue [Unknown]
  - Drug ineffective [Recovering/Resolving]
  - White blood cell count increased [Unknown]
  - Incorrect dose administered [Unknown]
  - Ageusia [Recovering/Resolving]
  - Monocyte count increased [Unknown]
  - Wrong technique in product usage process [Unknown]
  - Anosmia [Recovering/Resolving]

NARRATIVE: CASE EVENT DATE: 201911
